FAERS Safety Report 6030414-8 (Version None)
Quarter: 2009Q1

REPORT INFORMATION
  Report Type: 
  Country: None (occurrence: None)
  Receive Date: 20090106
  Receipt Date: 20090106
  Transmission Date: 20090719
  Serious: No
  Sender: FDA-Public Use
  Company Number: None

PATIENT
  Age: 76 Year
  Sex: Male

DRUGS (1)
  1. VARENICLINE [Suspect]
     Indication: EX-TOBACCO USER
     Dosage: 1 MG BID PO
     Route: 048
     Dates: start: 20080611, end: 20080702

REACTIONS (3)
  - AGGRESSION [None]
  - AGITATION [None]
  - RESTLESSNESS [None]
